FAERS Safety Report 6005915-9 (Version None)
Quarter: 2008Q4

REPORT INFORMATION
  Report Type: 
  Country: None (occurrence: None)
  Receive Date: 20081217
  Receipt Date: 20071228
  Transmission Date: 20090506
  Serious: No
  Sender: FDA-Public Use
  Company Number: US-AMGEN-KDL258446

PATIENT
  Sex: Female

DRUGS (1)
  1. ENBREL [Suspect]
     Indication: PSORIASIS
     Route: 058
     Dates: start: 20070329

REACTIONS (5)
  - DRUG INEFFECTIVE [None]
  - HEADACHE [None]
  - PAIN [None]
  - SINUSITIS [None]
  - SNEEZING [None]
